FAERS Safety Report 23217959 (Version 1)
Quarter: 2023Q4

REPORT INFORMATION
  Report Type: Report from Study
  Country: US (occurrence: US)
  Receive Date: 20231122
  Receipt Date: 20231122
  Transmission Date: 20240110
  Serious: Yes (Other)
  Sender: FDA-Public Use
  Company Number: US-BIOGEN-2023BI01236894

PATIENT
  Sex: Female

DRUGS (1)
  1. VUMERITY [Suspect]
     Active Substance: DIROXIMEL FUMARATE
     Indication: Multiple sclerosis
     Route: 050
     Dates: start: 20220106

REACTIONS (6)
  - Full blood count decreased [Unknown]
  - Fungal oesophagitis [Unknown]
  - Infection [Unknown]
  - Immune system disorder [Unknown]
  - Arthralgia [Unknown]
  - Joint swelling [Unknown]
